FAERS Safety Report 7522834-7 (Version None)
Quarter: 2011Q2

REPORT INFORMATION
  Report Type: 
  Country: None (occurrence: None)
  Receive Date: 20110603
  Receipt Date: 20110525
  Transmission Date: 20111010
  Serious: Yes (Hospitalization)
  Sender: FDA-Public Use
  Company Number: PHFR2011GB03298

PATIENT
  Sex: Female

DRUGS (7)
  1. FUROSEMIDE [Suspect]
     Indication: OEDEMA
     Route: 042
  2. PHENTOLAMINE MESYLATE [Suspect]
     Route: 042
  3. PHOSPHATE-SANDOZ [Suspect]
     Route: 042
  4. ACETAMINOPHEN [Suspect]
     Dosage: UNK
     Route: 042
  5. VANCOMYCIN HYDROCHLORIDE [Suspect]
     Route: 042
  6. PROPOFOL [Suspect]
     Route: 042
  7. MEROPENEM [Suspect]
     Route: 042

REACTIONS (7)
  - DEVICE RELATED SEPSIS [None]
  - HYPERTENSION [None]
  - MALAISE [None]
  - ABDOMINAL SEPSIS [None]
  - OEDEMA [None]
  - GENERAL PHYSICAL HEALTH DETERIORATION [None]
  - BLOOD PHOSPHORUS DECREASED [None]
